FAERS Safety Report 7029443 (Version 2)
Quarter: 2013Q3

REPORT INFORMATION
  Report Type: Spontaneous
  Country: US (occurrence: US)
  Receive Date: 20090622
  Receipt Date: 20130725
  Transmission Date: 20140515
  Serious: Yes (Hospitalization, Other)
  Sender: FDA-Public Use
  Company Number: US-ELI_LILLY_AND_COMPANY-US200906003539

PATIENT
  Age: 47 Year
  Sex: Male

DRUGS (6)
  1. HUMALOG LISPRO [Suspect]
     Indication: TYPE 2 DIABETES MELLITUS
     Dates: start: 2002
  2. HUMALOG LISPRO [Suspect]
     Dates: start: 2002
  3. HUMALOG LISPRO [Suspect]
     Indication: TYPE 2 DIABETES MELLITUS
     Dosage: UNK
     Dates: start: 2002
  4. HUMULIN NPH [Suspect]
     Dates: start: 2002
  5. HUMULIN NPH [Suspect]
     Dates: start: 2002
  6. LANTUS [Concomitant]

REACTIONS (12)
  - Pancreatic carcinoma [Recovered/Resolved]
  - Lymphoma [Recovered/Resolved]
  - Insulin resistant diabetes [Not Recovered/Not Resolved]
  - Blood glucose fluctuation [Not Recovered/Not Resolved]
  - Blood glucose increased [Not Recovered/Not Resolved]
  - Spinal disorder [Not Recovered/Not Resolved]
  - Diabetic retinopathy [Not Recovered/Not Resolved]
  - Spinal column stenosis [Not Recovered/Not Resolved]
  - Neuropathy peripheral [Not Recovered/Not Resolved]
  - Lymphadenopathy [Not Recovered/Not Resolved]
  - Expired drug administered [Recovered/Resolved]
  - Intentional drug misuse [Recovered/Resolved]
